FAERS Safety Report 15056800 (Version 1)
Quarter: 2018Q2

REPORT INFORMATION
  Report Type: Spontaneous
  Country: US (occurrence: US)
  Receive Date: 20180604
  Receipt Date: 20180604
  Transmission Date: 20180711
  Serious: Yes (Life-Threatening)
  Sender: FDA-Public Use
  Company Number: None

PATIENT
  Age: 52 Year
  Sex: Female
  Weight: 78.15 kg

DRUGS (11)
  1. SODIUM CHLORIDE 0.9% 1000ML [Concomitant]
     Dates: start: 20180514, end: 20180514
  2. ADCETRIS [Suspect]
     Active Substance: BRENTUXIMAB VEDOTIN
     Indication: HODGKIN^S DISEASE
     Route: 042
     Dates: start: 20180514, end: 20180514
  3. ALEVE [Concomitant]
     Active Substance: NAPROXEN SODIUM
  4. DIPHENHYDRAMINE 50MG IV PUSH [Concomitant]
     Dates: start: 20180514, end: 20180514
  5. CATHFLO ACTIVASE  2MG IV FOR 1 DAY [Concomitant]
     Dates: start: 20180514, end: 20180514
  6. CLARITIN [Concomitant]
     Active Substance: LORATADINE
  7. ACETAMINOPHEN 650MG [Concomitant]
     Dates: start: 20180514, end: 20180514
  8. SUDAFED [Concomitant]
     Active Substance: PSEUDOEPHEDRINE HYDROCHLORIDE
  9. DEXAMETHASONE 20MG IV PUSH [Concomitant]
     Dates: start: 20180514, end: 20180514
  10. DIPHENHYDRAMINE 25MG IV OVER 15 MIN [Concomitant]
     Dates: start: 20180514, end: 20180514
  11. FAMOTIDINE 20MG IV OVER 15 MIN [Concomitant]
     Dates: start: 20180514, end: 20180514

REACTIONS (11)
  - Pharyngeal paraesthesia [None]
  - Chest discomfort [None]
  - Flushing [None]
  - Erythema [None]
  - Back pain [None]
  - Vomiting [None]
  - Dyspnoea [None]
  - Swollen tongue [None]
  - Generalised erythema [None]
  - Nausea [None]
  - Condition aggravated [None]

NARRATIVE: CASE EVENT DATE: 20180514
